FAERS Safety Report 7941196-4 (Version None)
Quarter: 2011Q4

REPORT INFORMATION
  Report Type: 
  Country: None (occurrence: None)
  Receive Date: 20111122
  Receipt Date: 20111109
  Transmission Date: 20120403
  Serious: Yes (Hospitalization, Disabling, Other)
  Sender: FDA-Public Use
  Company Number: 2010MA005099

PATIENT
  Age: 61 Year
  Sex: Female
  Weight: 78.6991 kg

DRUGS (117)
  1. METOCLOPRAMIDE [Suspect]
     Indication: GASTROOESOPHAGEAL REFLUX DISEASE
     Dosage: 60 MG;QD;PO
     Route: 048
     Dates: start: 19900116, end: 20081201
  2. METOCLOPRAMIDE [Suspect]
     Indication: IMPAIRED GASTRIC EMPTYING
     Dosage: 60 MG;QD;PO
     Route: 048
     Dates: start: 19900116, end: 20081201
  3. CLINDAMYCIN [Concomitant]
  4. CLONAZEPAM [Concomitant]
  5. NEXIUM [Concomitant]
  6. NITROQUICK SL [Concomitant]
  7. ONDANSETRON [Concomitant]
  8. PAXIL [Concomitant]
  9. SKELAXIN [Concomitant]
  10. SUCRALFATE [Concomitant]
  11. TOBRADEX [Concomitant]
  12. FLEXEREL [Concomitant]
  13. PAMELOR [Concomitant]
  14. RELAFEN [Concomitant]
  15. RISPERIDONE [Concomitant]
  16. AMCINONIDE [Concomitant]
  17. ATENOLOL [Concomitant]
  18. CYCLOCORT CREAM [Concomitant]
  19. FERROUS SULFATE TAB [Concomitant]
  20. FUROSEMIDE [Concomitant]
  21. HYDROXYZINE [Concomitant]
  22. PREDNISONE [Concomitant]
  23. REMERON [Concomitant]
  24. TRICOR [Concomitant]
  25. ZOCOR [Concomitant]
  26. AXID [Concomitant]
  27. COGENTIN [Concomitant]
  28. ELAVIL [Concomitant]
  29. FIBER-CON [Concomitant]
  30. MS CONTIN [Concomitant]
  31. TIGAN [Concomitant]
  32. VASOTEC [Concomitant]
  33. VENTOLIN [Concomitant]
  34. XENAZINE [Concomitant]
  35. CAPEX [Concomitant]
  36. FOSAMAX [Concomitant]
  37. GEMFIBROZIL [Concomitant]
  38. HUMALOG [Concomitant]
  39. LISINOPRIL [Concomitant]
  40. PHENERGAN [Concomitant]
  41. NAPROXEN (ALEVE) [Concomitant]
  42. ATARAX [Concomitant]
  43. CORTISONE ACETATE [Concomitant]
  44. DYAZIDE [Concomitant]
  45. IMODIUM [Concomitant]
  46. MICRONASE [Concomitant]
  47. MIDRIN [Concomitant]
  48. MILK OF MAGNESIA TAB [Concomitant]
  49. NORPRAMIN [Concomitant]
  50. OXSORALEN-ULTRA [Concomitant]
  51. CEFTRIAXONE [Concomitant]
  52. CLOTRIMAZOLE-BETAMETHASONE CREAM [Concomitant]
  53. EFFEXOR XR [Concomitant]
  54. NEURONTIN [Concomitant]
  55. ZOLPIDEM [Concomitant]
  56. BACTRIM DS [Concomitant]
  57. CEFTIN [Concomitant]
  58. CRESTOR [Concomitant]
  59. DAYPRO [Concomitant]
  60. PROZAC [Concomitant]
  61. SAVELLA [Concomitant]
  62. VALIUM [Concomitant]
  63. WESTCORT [Concomitant]
  64. ACETAMINOPHEN [Concomitant]
  65. CELEBREX [Concomitant]
  66. DOCUSATE SODIUM [Concomitant]
  67. FAMOTIDINE [Concomitant]
  68. FENTANYL [Concomitant]
  69. FLAGYL ER [Concomitant]
  70. OXISTAT CREAM [Concomitant]
  71. PRILOSEC [Concomitant]
  72. TRAZODONE HCL [Concomitant]
  73. VYTORIN [Concomitant]
  74. COLACE [Concomitant]
  75. EFFEXOR [Concomitant]
  76. EXCEDRIN PM [Concomitant]
  77. MYLANTA [Concomitant]
  78. SOMA [Concomitant]
  79. XANAX [Concomitant]
  80. DIPHENHYDRAMINE HCL [Concomitant]
  81. GLYBURIDE [Concomitant]
  82. LOVENOX [Concomitant]
  83. TRAMADOL HCL [Concomitant]
  84. BENADRYL [Concomitant]
  85. TESSALON [Concomitant]
  86. ZANTAC [Concomitant]
  87. DARVOCET-N 100 [Concomitant]
  88. LIPITOR [Concomitant]
  89. LUNESTA [Concomitant]
  90. METFORMIN HCL [Concomitant]
  91. MORPHINE SULFATE [Concomitant]
  92. OMACOR [Concomitant]
  93. VIOXX [Concomitant]
  94. VITAMIN D [Concomitant]
  95. WARFARIN SODIUM [Concomitant]
  96. FIORINAL [Concomitant]
  97. FOSAMAX [Concomitant]
  98. METAMUCIL-2 [Concomitant]
  99. SENOKOT [Concomitant]
  100. SUMATRIPTAN [Concomitant]
  101. CALCIUM CARBONATE [Concomitant]
  102. AMITRIPTYLINE HCL [Concomitant]
  103. ASPIRIN [Concomitant]
  104. BUSPAR [Concomitant]
  105. CEPHALEXIN [Concomitant]
  106. HYDROCHLOROTHIAZIDE HYDROCODONE-APAP [Concomitant]
  107. IMITREX [Concomitant]
  108. LAMISIL [Concomitant]
  109. HUMALOG [Concomitant]
  110. SENNAGEN [Concomitant]
  111. ANTIVERT [Concomitant]
  112. DOMPERIDONE [Concomitant]
  113. DURAGESIC-100 [Concomitant]
  114. GI COCKTAIL [Concomitant]
  115. JANUVIA [Concomitant]
  116. SEPTRA DS [Concomitant]
  117. VICODIN [Concomitant]

REACTIONS (134)
  - PANCREATIC ENLARGEMENT [None]
  - PAIN [None]
  - DEPRESSION [None]
  - DARK CIRCLES UNDER EYES [None]
  - MENTAL STATUS CHANGES [None]
  - BUTTERFLY RASH [None]
  - DISTURBANCE IN ATTENTION [None]
  - DIABETES MELLITUS INADEQUATE CONTROL [None]
  - ANOSOGNOSIA [None]
  - PERSONALITY DISORDER [None]
  - PEPTIC ULCER [None]
  - DISSOCIATIVE DISORDER [None]
  - INTERVERTEBRAL DISC DEGENERATION [None]
  - HAEMORRHOIDS [None]
  - RENAL CYST [None]
  - DYSKINESIA [None]
  - LIP INJURY [None]
  - FEELING ABNORMAL [None]
  - MIGRAINE [None]
  - FEELING JITTERY [None]
  - MUSCULOSKELETAL STIFFNESS [None]
  - DERMATITIS [None]
  - APATHY [None]
  - EXCESSIVE EYE BLINKING [None]
  - HUNTINGTON'S DISEASE [None]
  - COLONIC POLYP [None]
  - HIATUS HERNIA [None]
  - ECONOMIC PROBLEM [None]
  - TONGUE BITING [None]
  - BRUXISM [None]
  - HYPERTENSION [None]
  - HYPERVENTILATION [None]
  - GASTROOESOPHAGEAL REFLUX DISEASE [None]
  - IRRITABLE BOWEL SYNDROME [None]
  - MUSCULOSKELETAL CHEST PAIN [None]
  - NEURODERMATITIS [None]
  - MELANOCYTIC NAEVUS [None]
  - SCIATICA [None]
  - DRUG WITHDRAWAL SYNDROME [None]
  - RENAL FAILURE [None]
  - HEPATIC STEATOSIS [None]
  - GAIT DISTURBANCE [None]
  - ANAEMIA [None]
  - INTERVERTEBRAL DISC PROTRUSION [None]
  - SPINAL COLUMN STENOSIS [None]
  - CHOREA [None]
  - PARAPSORIASIS [None]
  - SCOLIOSIS [None]
  - PSYCHOSOMATIC DISEASE [None]
  - WEIGHT FLUCTUATION [None]
  - COUGH [None]
  - EPISTAXIS [None]
  - DUODENITIS [None]
  - FUNGAL INFECTION [None]
  - MUSCULAR WEAKNESS [None]
  - FIBROMYALGIA [None]
  - UPPER LIMB FRACTURE [None]
  - CATARACT [None]
  - PNEUMONIA [None]
  - OSTEOPOROSIS [None]
  - EMOTIONAL DISORDER [None]
  - CHOKING [None]
  - MEMORY IMPAIRMENT [None]
  - THROAT IRRITATION [None]
  - HYPOCHONDRIASIS [None]
  - BURNING SENSATION [None]
  - CUSHINGOID [None]
  - MENTAL DISORDER [None]
  - OESOPHAGEAL PAIN [None]
  - MUSCLE TWITCHING [None]
  - NEPHROLITHIASIS [None]
  - CONFUSIONAL STATE [None]
  - MYOFASCIAL PAIN SYNDROME [None]
  - NEUROPATHY PERIPHERAL [None]
  - ABDOMINAL MASS [None]
  - OBESITY [None]
  - PNEUMONITIS [None]
  - LYMPHADENOPATHY [None]
  - HYPERPLASIA [None]
  - LABYRINTHITIS [None]
  - STRESS [None]
  - SOMATISATION DISORDER [None]
  - TREMOR [None]
  - DYSPNOEA [None]
  - LICHEN PLANUS [None]
  - DERMATOPHYTOSIS [None]
  - OSTEOARTHRITIS [None]
  - TENSION HEADACHE [None]
  - JUDGEMENT IMPAIRED [None]
  - INSOMNIA [None]
  - METABOLIC DISORDER [None]
  - VITAMIN D DEFICIENCY [None]
  - DRY MOUTH [None]
  - PSORIATIC ARTHROPATHY [None]
  - TARDIVE DYSKINESIA [None]
  - TINEA VERSICOLOUR [None]
  - IMPAIRED WORK ABILITY [None]
  - OEDEMA PERIPHERAL [None]
  - FLAT AFFECT [None]
  - DYSPHORIA [None]
  - TIC [None]
  - GRIMACING [None]
  - SLEEP DISORDER [None]
  - DRUG DEPENDENCE [None]
  - DRY SKIN [None]
  - ECZEMA [None]
  - PYELONEPHRITIS [None]
  - CONTUSION [None]
  - RASH [None]
  - GASTRITIS [None]
  - FRACTURED COCCYX [None]
  - DYSPHAGIA [None]
  - PARKINSONISM [None]
  - SLEEP APNOEA SYNDROME [None]
  - HERNIA [None]
  - ANKLE FRACTURE [None]
  - DIVERTICULUM INTESTINAL [None]
  - AORTIC ARTERIOSCLEROSIS [None]
  - EXTRAPYRAMIDAL DISORDER [None]
  - OROPHARYNGEAL PAIN [None]
  - DYSPHONIA [None]
  - AFFECT LABILITY [None]
  - ANXIETY [None]
  - SOCIAL AVOIDANT BEHAVIOUR [None]
  - FEAR [None]
  - PSORIASIS [None]
  - FALL [None]
  - RIB FRACTURE [None]
  - HYPERCALCAEMIA [None]
  - SCHIZOPHRENIA [None]
  - BRONCHITIS [None]
  - HEPATITIS [None]
  - PULMONARY EMBOLISM [None]
  - IMPAIRED GASTRIC EMPTYING [None]
